FAERS Safety Report 12589215 (Version 1)
Quarter: 2016Q3

REPORT INFORMATION
  Report Type: Spontaneous
  Country: US (occurrence: US)
  Receive Date: 20160725
  Receipt Date: 20160725
  Transmission Date: 20161109
  Serious: No
  Sender: FDA-Public Use
  Company Number: US-JNJFOC-20160526886

PATIENT
  Age: 10 Year
  Sex: Female
  Weight: 27.22 kg

DRUGS (2)
  1. MOTRIN JUNIOR STRENGTH [Suspect]
     Active Substance: IBUPROFEN
     Route: 048
  2. MOTRIN JUNIOR STRENGTH [Suspect]
     Active Substance: IBUPROFEN
     Indication: HEADACHE
     Route: 048
     Dates: start: 20160526, end: 20160526

REACTIONS (3)
  - Pyrexia [Unknown]
  - Vomiting [Unknown]
  - Malaise [Unknown]

NARRATIVE: CASE EVENT DATE: 20160526
